FAERS Safety Report 20617761 (Version 5)
Quarter: 2022Q4

REPORT INFORMATION
  Report Type: Report from Study
  Country: US (occurrence: US)
  Receive Date: 20220321
  Receipt Date: 20221221
  Transmission Date: 20230112
  Serious: Yes (Other)
  Sender: FDA-Public Use
  Company Number: US-ABBVIE-22K-163-4322848-00

PATIENT
  Sex: Male

DRUGS (16)
  1. VENCLEXTA [Suspect]
     Active Substance: VENETOCLAX
     Indication: Chronic lymphocytic leukaemia
     Dosage: TAKE 4 TABLETS BY MOUTH DAILY WITH BREAKFAST
     Route: 048
  2. VENCLEXTA [Suspect]
     Active Substance: VENETOCLAX
     Indication: Chronic lymphocytic leukaemia
     Dosage: THEN, TWO TABLETS DAILY WEEK 4. START PACK ON DAY 22.
     Route: 048
  3. VENCLEXTA [Suspect]
     Active Substance: VENETOCLAX
     Indication: Chronic lymphocytic leukaemia
     Dosage: THEN, ONE TABLET BY MOUTH DAILY WEEK THREE.
     Route: 048
  4. VENCLEXTA [Suspect]
     Active Substance: VENETOCLAX
     Indication: Chronic lymphocytic leukaemia
     Dosage: THEN, ONE TABLET DAILY BY MOUTH WEEK TWO.
     Route: 048
  5. VENCLEXTA [Suspect]
     Active Substance: VENETOCLAX
     Indication: Chronic lymphocytic leukaemia
     Dosage: TAKE TWO TABLETS BY MOUTH EVERY DAY ON WEEK 1.
     Route: 048
  6. LEVOTHYROXINE [Concomitant]
     Active Substance: LEVOTHYROXINE
     Indication: Product used for unknown indication
     Dosage: 50 MCG TABLET
     Route: 048
  7. GLUCOTROL [Concomitant]
     Active Substance: GLIPIZIDE
     Indication: Product used for unknown indication
     Dosage: TAKE 1.5 TABLET BEFORE BREAKFAST
     Route: 048
  8. TYLENOL [Concomitant]
     Active Substance: ACETAMINOPHEN
     Indication: Pain
     Dosage: 650 MG CONTROLLED RELEASE (CR) TABLET
     Route: 048
  9. MEVACOR [Concomitant]
     Active Substance: LOVASTATIN
     Indication: Product used for unknown indication
     Route: 048
  10. SODIUM CHLORIDE [Concomitant]
     Active Substance: SODIUM CHLORIDE
     Indication: Product used for unknown indication
     Dosage: SPRAY IN EACH NOSTRIL
     Route: 045
  11. ZOVIRAX [Concomitant]
     Active Substance: ACYCLOVIR
     Indication: Product used for unknown indication
     Dosage: 0.5 DAY ?TAKE 1 TABLET
  12. ZYLOPRIM [Concomitant]
     Active Substance: ALLOPURINOL
     Indication: Product used for unknown indication
  13. Efudex 5% cream [Concomitant]
     Indication: Product used for unknown indication
     Dosage: 5% LEFT INNER EAR RIM
  14. ZOFRAN [Concomitant]
     Active Substance: ONDANSETRON HYDROCHLORIDE
     Indication: Product used for unknown indication
     Dosage: TAKE 1 TABLET?FREQUENCY 8 HOURS
  15. ASPIRIN [Concomitant]
     Active Substance: ASPIRIN
     Indication: Product used for unknown indication
     Route: 048
  16. Glycerin-polysorbate 80 [Concomitant]
     Indication: Product used for unknown indication
     Dosage: APPLY 1 DROP TO EYE
     Route: 047

REACTIONS (6)
  - Squamous cell carcinoma [Unknown]
  - Squamous cell carcinoma of the parotid gland [Unknown]
  - Skin disorder [Unknown]
  - Skin ulcer [Unknown]
  - Hernia [Unknown]
  - COVID-19 [Unknown]
